FAERS Safety Report 15673723 (Version 1)
Quarter: 2018Q4

REPORT INFORMATION
  Report Type: Spontaneous
  Country: US (occurrence: US)
  Receive Date: 20181129
  Receipt Date: 20181129
  Transmission Date: 20190205
  Serious: Yes (Other)
  Sender: FDA-Public Use
  Company Number: US-PFIZER INC-2018406939

PATIENT
  Sex: Female

DRUGS (1)
  1. LYRICA [Suspect]
     Active Substance: PREGABALIN
     Dosage: UNK

REACTIONS (7)
  - Pain [Unknown]
  - Muscle spasms [Unknown]
  - Sensory loss [Unknown]
  - Spinal column stenosis [Unknown]
  - Immobile [Unknown]
  - Nerve compression [Unknown]
  - Condition aggravated [Unknown]
